FAERS Safety Report 16839598 (Version 1)
Quarter: 2019Q3

REPORT INFORMATION
  Report Type: Spontaneous
  Country: US (occurrence: US)
  Receive Date: 20190731
  Receipt Date: 20190731
  Transmission Date: 20191005
  Serious: Yes (Other)
  Sender: FDA-Public Use
  Company Number: None

PATIENT
  Age: 72 Year
  Sex: Female
  Weight: 81.65 kg

DRUGS (11)
  1. SOMO MOUTH GUARD FOR SLEEP APNEA [Concomitant]
  2. DILITIAZEM ER 20MG [Concomitant]
  3. BACITRACIN 500UNIT/GM OPTH(GENERIC BACIGUENT) [Suspect]
     Active Substance: BACITRACIN
     Indication: ULCERATIVE KERATITIS
     Dosage: ?          OTHER ROUTE:LOWER R EYE LID?         1/4 AMOUNT
     Route: 047
     Dates: start: 20190121, end: 20190206
  4. SUSTANCE EYE DROPS [Concomitant]
  5. ROSUVASTATIN 10MG [Concomitant]
     Active Substance: ROSUVASTATIN
  6. LEVOTHYROXINE 0.125MG [Concomitant]
     Active Substance: LEVOTHYROXINE
  7. VALACYCLOUVIR 250 [Concomitant]
  8. ALLEGRA [Concomitant]
     Active Substance: FEXOFENADINE HYDROCHLORIDE
  9. HYDROCHLOROTHIAZIDE 12.5 MG DAILY [Concomitant]
  10. VITRON [Concomitant]
  11. LOSARTAN 100MG [Concomitant]
     Active Substance: LOSARTAN

REACTIONS (6)
  - Impaired healing [None]
  - Dry eye [None]
  - Infection [None]
  - Eye pain [None]
  - Epigastric discomfort [None]
  - Visual impairment [None]

NARRATIVE: CASE EVENT DATE: 20190107
